FAERS Safety Report 8352885-4 (Version None)
Quarter: 2012Q2

REPORT INFORMATION
  Report Type: 
  Country: None (occurrence: None)
  Receive Date: 20120511
  Receipt Date: 20120503
  Transmission Date: 20120825
  Serious: Yes (Other)
  Sender: FDA-Public Use
  Company Number: SE-UCBSA-056198

PATIENT
  Sex: Male

DRUGS (2)
  1. WARFARIN SODIUM [Concomitant]
     Indication: ANTIPHOSPHOLIPID SYNDROME
  2. KEPPRA [Suspect]

REACTIONS (3)
  - THROMBOCYTOPENIA [None]
  - CONVULSION [None]
  - INSOMNIA [None]
